FAERS Safety Report 16103481 (Version 1)
Quarter: 2019Q1

REPORT INFORMATION
  Report Type: Spontaneous
  Country: US (occurrence: US)
  Receive Date: 20190322
  Receipt Date: 20190322
  Transmission Date: 20190418
  Serious: No
  Sender: FDA-Public Use
  Company Number: US-TEVA-2019-US-1029263

PATIENT
  Sex: Male

DRUGS (1)
  1. AIRDUO RESPICLICK [Suspect]
     Active Substance: FLUTICASONE PROPIONATE\SALMETEROL XINAFOATE

REACTIONS (5)
  - Chills [Recovering/Resolving]
  - Bronchitis [Recovering/Resolving]
  - Diplopia [Recovering/Resolving]
  - Disturbance in attention [Recovering/Resolving]
  - Pyrexia [Recovering/Resolving]
